FAERS Safety Report 6329501 (Version 6)
Quarter: 2017Q3

REPORT INFORMATION
  Report Type: Spontaneous
  Country: US (occurrence: US)
  Receive Date: 20061108
  Receipt Date: 20170925
  Transmission Date: 20171128
  Serious: Yes (Hospitalization, Other)
  Sender: FDA-Public Use
  Company Number: US-PFIZER INC-2006133537

PATIENT
  Sex: Male

DRUGS (2)
  1. VIOXX [Suspect]
     Active Substance: ROFECOXIB
     Dosage: UNK
     Route: 048
     Dates: start: 20000705, end: 20041001
  2. CELEBREX [Suspect]
     Active Substance: CELECOXIB
     Indication: PAIN MANAGEMENT
     Dosage: 100 MG, 1X/DAY
     Route: 048
     Dates: start: 20010705, end: 20020930

REACTIONS (1)
  - Ischaemic stroke [Unknown]

NARRATIVE: CASE EVENT DATE: 20041118
